FAERS Safety Report 18204812 (Version 2)
Quarter: 2020Q3

REPORT INFORMATION
  Report Type: Spontaneous
  Country: FR (occurrence: FR)
  Receive Date: 20200828
  Receipt Date: 20200908
  Transmission Date: 20201103
  Serious: Yes (Other)
  Sender: FDA-Public Use
  Company Number: FR-AUROBINDO-AUR-APL-2019-072277

PATIENT
  Age: 63 Year
  Sex: Female

DRUGS (1)
  1. IMATINIB. [Suspect]
     Active Substance: IMATINIB MESYLATE
     Indication: GASTROINTESTINAL STROMAL TUMOUR
     Dosage: 400 MILLIGRAM, ONCE A DAY, ADJUVANT THERAPY (RE?INITIATED, PERMANENTLY STOPPED )
     Route: 065

REACTIONS (6)
  - Arthralgia [Recovered/Resolved]
  - Erythrocyanosis [Recovered/Resolved]
  - Joint swelling [Recovered/Resolved]
  - Bone marrow oedema [Recovered/Resolved]
  - Complex regional pain syndrome [Recovered/Resolved]
  - Off label use [Unknown]
